FAERS Safety Report 25384435 (Version 1)
Quarter: 2025Q2

REPORT INFORMATION
  Report Type: Report from Study
  Country: DE (occurrence: DE)
  Receive Date: 20250602
  Receipt Date: 20250602
  Transmission Date: 20250717
  Serious: Yes (Other)
  Sender: ROCHE
  Company Number: DE-ROCHE-10000296297

PATIENT

DRUGS (1)
  1. TRASTUZUMAB [Suspect]
     Active Substance: TRASTUZUMAB
     Indication: Breast cancer
     Route: 065

REACTIONS (13)
  - Pigmentation disorder [Unknown]
  - Erythema [Unknown]
  - Infection [Unknown]
  - Pneumonia [Unknown]
  - Fibrosis [Unknown]
  - Lymphoedema [Unknown]
  - Lymphoedema [Unknown]
  - Fatigue [Unknown]
  - Fibrosis [Unknown]
  - Breast pain [Unknown]
  - Necrosis [Unknown]
  - Oesophagitis [Unknown]
  - Mastitis [Unknown]
